FAERS Safety Report 19233049 (Version 1)
Quarter: 2021Q2

REPORT INFORMATION
  Report Type: Spontaneous
  Country: BR (occurrence: BR)
  Receive Date: 20210507
  Receipt Date: 20210507
  Transmission Date: 20210717
  Serious: Yes (Other)
  Sender: FDA-Public Use
  Company Number: NVSC2021BR102143

PATIENT
  Sex: Male

DRUGS (4)
  1. TEGRETOL [Suspect]
     Active Substance: CARBAMAZEPINE
     Dosage: 400 MG (HE STARTED USING WHEN HE WAS 5 YEARS OLD) (2 AT NIGHT )
     Route: 065
  2. TEGRETOL [Suspect]
     Active Substance: CARBAMAZEPINE
     Indication: PRODUCT USED FOR UNKNOWN INDICATION
     Dosage: 200 MG (WHEN HE WAS LITTLE WHEN HE WAS 4 OR 5 YEARS OLD) (2 IN THE MORNING)
     Route: 065
  3. CARBAMAZEPINE. [Concomitant]
     Active Substance: CARBAMAZEPINE
     Indication: PRODUCT USED FOR UNKNOWN INDICATION
     Dosage: 200 MG
     Route: 065
  4. CARBAMAZEPINE. [Concomitant]
     Active Substance: CARBAMAZEPINE
     Dosage: 400 MG
     Route: 065

REACTIONS (5)
  - Seizure [Unknown]
  - Cerebral disorder [Recovering/Resolving]
  - Inappropriate schedule of product administration [Unknown]
  - Product prescribing error [Unknown]
  - Prescription drug used without a prescription [Unknown]
